FAERS Safety Report 5139194-1 (Version None)
Quarter: 2006Q4

REPORT INFORMATION
  Report Type: 
  Country: None (occurrence: None)
  Receive Date: 20061030
  Receipt Date: 20060711
  Transmission Date: 20070319
  Serious: No
  Sender: FDA-Public Use
  Company Number: US-GLAXOSMITHKLINE-A0611795A

PATIENT
  Age: 78 Year
  Sex: Female

DRUGS (7)
  1. ADVAIR HFA [Suspect]
     Indication: CHRONIC OBSTRUCTIVE PULMONARY DISEASE
     Dosage: 1PUFF TWICE PER DAY
     Route: 055
     Dates: start: 20010101
  2. RHINOCORT AQUA [Concomitant]
  3. COMBIVENT [Concomitant]
  4. PULMICORT [Concomitant]
  5. NEBULIZER [Concomitant]
  6. ZIAC [Concomitant]
  7. LEVOTHYROXIN [Concomitant]

REACTIONS (1)
  - ARTHRALGIA [None]
